FAERS Safety Report 4938430-1 (Version None)
Quarter: 2006Q1

REPORT INFORMATION
  Report Type: 
  Country: None (occurrence: None)
  Receive Date: 20060302
  Receipt Date: 20060217
  Transmission Date: 20060701
  Serious: Yes (Life-Threatening, Hospitalization, Disabling, Other)
  Sender: FDA-Public Use
  Company Number: 2006EU000231

PATIENT
  Age: 45 Year
  Sex: Male
  Weight: 54 kg

DRUGS (10)
  1. PROGRAF [Suspect]
     Indication: RENAL TRANSPLANT
     Dosage: SEE IMAGE, ORAL
     Route: 048
     Dates: start: 20050101, end: 20050801
  2. PROGRAF [Suspect]
     Indication: RENAL TRANSPLANT
     Dosage: SEE IMAGE, ORAL
     Route: 048
     Dates: start: 20050901, end: 20051201
  3. PROGRAF [Suspect]
     Indication: RENAL TRANSPLANT
     Dosage: SEE IMAGE, ORAL
     Route: 048
     Dates: start: 20051201, end: 20060101
  4. PROGRAF [Suspect]
     Indication: RENAL TRANSPLANT
     Dosage: SEE IMAGE, ORAL
     Route: 048
     Dates: start: 20060101, end: 20060201
  5. PREDNISOLONE [Suspect]
     Indication: RENAL TRANSPLANT
     Dosage: 7.5 MG, UID/QD, ORAL
     Route: 048
     Dates: start: 20040901
  6. CELLCEPT [Concomitant]
  7. RIFADIN [Concomitant]
  8. PIRILENE (PYRAZINAMIDE) [Concomitant]
  9. RIMIFON [Concomitant]
  10. IRBESARTAN [Concomitant]

REACTIONS (11)
  - AGITATION [None]
  - ANXIETY [None]
  - DELIRIUM [None]
  - DEPRESSION [None]
  - DRUG INTERACTION [None]
  - ENCEPHALITIS [None]
  - IMMUNOSUPPRESSANT DRUG LEVEL DECREASED [None]
  - INSOMNIA [None]
  - MENINGITIS [None]
  - THANATOPHOBIA [None]
  - TINNITUS [None]
